FAERS Safety Report 12967458 (Version 3)
Quarter: 2017Q2

REPORT INFORMATION
  Report Type: Spontaneous
  Country: US (occurrence: US)
  Receive Date: 20161123
  Receipt Date: 20170420
  Transmission Date: 20170830
  Serious: Yes (Hospitalization)
  Sender: FDA-Public Use
  Company Number: US-SUN PHARMACEUTICAL INDUSTRIES LTD-2016US-128132

PATIENT
  Age: 72 Year
  Sex: Female

DRUGS (2)
  1. ZONISAMIDE. [Suspect]
     Active Substance: ZONISAMIDE
     Indication: WEIGHT DECREASED
  2. ZONISAMIDE. [Suspect]
     Active Substance: ZONISAMIDE
     Indication: MIGRAINE
     Route: 065

REACTIONS (4)
  - Ataxia [Recovered/Resolved]
  - Diplopia [Recovered/Resolved]
  - Dizziness [Recovered/Resolved]
  - Eye movement disorder [Recovered/Resolved]
